FAERS Safety Report 8080119-7 (Version None)
Quarter: 2012Q1

REPORT INFORMATION
  Report Type: 
  Country: None (occurrence: None)
  Receive Date: 20120129
  Receipt Date: 20111027
  Transmission Date: 20120608
  Serious: No
  Sender: FDA-Public Use
  Company Number: US-ABBOTT-11P-163-0869433-00

PATIENT
  Age: 56 Year
  Sex: Male

DRUGS (14)
  1. COLCHICINE [Concomitant]
     Indication: GOUT
  2. PERCOCET [Concomitant]
     Indication: PAIN
     Dosage: 5/325MG
  3. TRAZODONE HCL [Concomitant]
     Indication: MUSCLE SPASMS
     Dosage: AT BEDTIME
  4. PRILOSEC [Concomitant]
     Indication: GASTROOESOPHAGEAL REFLUX DISEASE
     Dosage: 2 TABS IN MORNING AND 2 TABS AT NIGHT
  5. SPIRIVA [Concomitant]
     Indication: CHRONIC OBSTRUCTIVE PULMONARY DISEASE
     Dosage: DAILY
  6. DULERA ORAL INHALATION [Concomitant]
     Indication: CHRONIC OBSTRUCTIVE PULMONARY DISEASE
     Dosage: 200MCG/5MCG
  7. RANITIDINE [Concomitant]
     Indication: GASTROOESOPHAGEAL REFLUX DISEASE
     Dosage: AT BEDTIME
  8. CRESTOR [Concomitant]
     Indication: BLOOD CHOLESTEROL INCREASED
     Dosage: DAILY
  9. LORAZEPAM [Concomitant]
     Indication: ANXIETY
     Dosage: DAILY
  10. PROVENTIL [Concomitant]
     Indication: CHRONIC OBSTRUCTIVE PULMONARY DISEASE
     Dosage: AS REQUIRED
  11. ATENOLOL [Concomitant]
     Indication: HYPERTENSION
     Dosage: 1 TAB IN MORNING AND 2 TABS AT NIGHT
  12. NASONEX [Concomitant]
     Indication: SINUS DISORDER
     Dosage: 1 PUFF IN MORNING AND 1 PUFF AT BEDTIME
     Route: 045
  13. HUMIRA [Suspect]
     Indication: PSORIASIS
     Dosage: LOADING DOSE
     Dates: start: 20111024
  14. PLAVIX [Concomitant]
     Indication: THROMBOSIS PROPHYLAXIS
     Dosage: DAILY

REACTIONS (2)
  - INJECTION SITE PAIN [None]
  - RASH PUSTULAR [None]
